FAERS Safety Report 12953189 (Version 1)
Quarter: 2016Q4

REPORT INFORMATION
  Report Type: Spontaneous
  Country: CH (occurrence: CH)
  Receive Date: 20161117
  Receipt Date: 20161117
  Transmission Date: 20170207
  Serious: Yes (Hospitalization, Other)
  Sender: FDA-Public Use
  Company Number: CH-PFIZER INC-2016511916

PATIENT
  Age: 84 Year
  Sex: Male

DRUGS (10)
  1. QUETIAPIN [Concomitant]
     Active Substance: QUETIAPINE
     Dosage: UNK
  2. PENICILLIN [Concomitant]
     Active Substance: PENICILLIN
     Dosage: UNK
  3. CORDARONE [Interacting]
     Active Substance: AMIODARONE HYDROCHLORIDE
     Indication: VENTRICULAR TACHYCARDIA
     Dosage: 600 MG, 1X/DAY
     Route: 041
     Dates: start: 20161001, end: 20161004
  4. TRIATEC [Concomitant]
     Active Substance: RAMIPRIL
     Dosage: 1 DF, 2X/DAY
     Route: 048
  5. ATORVASTATIN CALCIUM. [Suspect]
     Active Substance: ATORVASTATIN CALCIUM
     Dosage: 40 MG, 1X/DAY
     Route: 048
     Dates: start: 201401
  6. PRADAXA [Interacting]
     Active Substance: DABIGATRAN ETEXILATE MESYLATE
     Indication: ATRIAL FIBRILLATION
     Dosage: 110 MG, 2X/DAY
     Route: 048
     Dates: start: 20140124, end: 20161006
  7. BISOPROLOL [Concomitant]
     Active Substance: BISOPROLOL
     Dosage: UNK
  8. FRAGMIN [Interacting]
     Active Substance: DALTEPARIN SODIUM
     Indication: THROMBOSIS PROPHYLAXIS
     Dosage: 2500 IU, 1X/DAY
     Route: 058
     Dates: start: 20161006
  9. CORDARONE [Interacting]
     Active Substance: AMIODARONE HYDROCHLORIDE
     Indication: VENTRICULAR TACHYCARDIA
     Dosage: 200 MG, 1X/DAY
     Route: 048
     Dates: start: 20161004
  10. LASIX [Concomitant]
     Active Substance: FUROSEMIDE
     Dosage: UNK

REACTIONS (9)
  - Inhibitory drug interaction [Recovered/Resolved]
  - Bacterial sepsis [Unknown]
  - Delirium [Unknown]
  - Anticoagulation drug level above therapeutic [Recovered/Resolved]
  - Labelled drug-drug interaction medication error [Recovered/Resolved]
  - Urogenital haemorrhage [Recovered/Resolved]
  - Toxicity to various agents [Recovered/Resolved]
  - Cardiogenic shock [Unknown]
  - Potentiating drug interaction [Recovered/Resolved]

NARRATIVE: CASE EVENT DATE: 20160930
